FAERS Safety Report 4597351-7 (Version None)
Quarter: 2005Q1

REPORT INFORMATION
  Report Type: 
  Country: None (occurrence: None)
  Receive Date: 20050303
  Receipt Date: 20050120
  Transmission Date: 20050727
  Serious: Yes (Hospitalization)
  Sender: FDA-Public Use
  Company Number: US-BRISTOL-MYERS SQUIBB COMPANY-12832218

PATIENT
  Age: 65 Year
  Sex: Female

DRUGS (6)
  1. PRAVACHOL [Suspect]
     Indication: BLOOD CHOLESTEROL INCREASED
     Route: 048
     Dates: start: 20041210, end: 20050107
  2. TRICOR [Suspect]
     Dates: start: 20041210, end: 20050107
  3. GLYBURIDE [Suspect]
  4. LOTREL [Concomitant]
  5. BENICAR [Concomitant]
  6. AMITRIPTYLINE [Concomitant]

REACTIONS (4)
  - HYPOGLYCAEMIA [None]
  - RENAL FAILURE [None]
  - RHABDOMYOLYSIS [None]
  - TRANSAMINASES INCREASED [None]
